FAERS Safety Report 6276155-3 (Version None)
Quarter: 2009Q3

REPORT INFORMATION
  Report Type: 
  Country: None (occurrence: None)
  Receive Date: 20090715
  Receipt Date: 20090715
  Transmission Date: 20100115
  Serious: Yes (Other)
  Sender: FDA-Public Use
  Company Number: None

PATIENT
  Sex: Female
  Weight: 77.5651 kg

DRUGS (1)
  1. GENERIC CIPRO 500 MG ER (REDDY'S LAB) [Suspect]
     Indication: RENAL PAPILLARY NECROSIS
     Dosage: 500 MG 1 X DAY
     Dates: start: 20090601, end: 20090621

REACTIONS (4)
  - DRUG HYPERSENSITIVITY [None]
  - EATING DISORDER [None]
  - MALAISE [None]
  - PRODUCT SUBSTITUTION ISSUE [None]
